FAERS Safety Report 4556635-9 (Version None)
Quarter: 2005Q1

REPORT INFORMATION
  Report Type: 
  Country: None (occurrence: None)
  Receive Date: 20050120
  Receipt Date: 20050110
  Transmission Date: 20050727
  Serious: Yes (Hospitalization)
  Sender: FDA-Public Use
  Company Number: PHFR2005GB00513

PATIENT
  Age: 81 Year
  Sex: Female

DRUGS (1)
  1. VALSARTAN [Suspect]
     Indication: HYPERTENSION
     Dosage: 160MG/DAY
     Route: 048
     Dates: start: 20040501, end: 20041101

REACTIONS (2)
  - BLOOD SODIUM DECREASED [None]
  - CARDIAC FAILURE [None]
